FAERS Safety Report 9000140 (Version 1)
Quarter: 2013Q1

REPORT INFORMATION
  Report Type: Spontaneous
  Country: US (occurrence: US)
  Receive Date: 20130102
  Receipt Date: 20130102
  Transmission Date: 20140127
  Serious: Yes (Other)
  Sender: FDA-Public Use
  Company Number: US-PFIZER INC-2012330837

PATIENT
  Age: 68 Year
  Sex: Female
  Weight: 80 kg

DRUGS (6)
  1. LIPITOR [Suspect]
     Indication: BLOOD CHOLESTEROL INCREASED
     Dosage: 20 MG, UNK
     Dates: start: 2008, end: 20121109
  2. TRILIPIX [Suspect]
     Indication: BLOOD TRIGLYCERIDES INCREASED
     Dosage: 135 MG, UNK
     Dates: start: 201009, end: 20121109
  3. BENICAR [Concomitant]
     Dosage: 20 MG, UNK
  4. SYNTHROID [Concomitant]
     Dosage: 100 UG, UNK
  5. BYSTOLIC [Concomitant]
     Indication: HYPERTENSION
     Dosage: 20 MG, UNK
  6. HCTZ [Concomitant]
     Dosage: 12.5 MG, 1X/DAY (25 MG 1/2 TABLET A DAY)

REACTIONS (6)
  - Renal impairment [Not Recovered/Not Resolved]
  - Muscle fatigue [Not Recovered/Not Resolved]
  - Muscle spasms [Not Recovered/Not Resolved]
  - Back pain [Not Recovered/Not Resolved]
  - Muscular weakness [Not Recovered/Not Resolved]
  - Hypoaesthesia [Not Recovered/Not Resolved]
